FAERS Safety Report 7934414-X (Version None)
Quarter: 2011Q4

REPORT INFORMATION
  Report Type: 
  Country: None (occurrence: None)
  Receive Date: 20111122
  Receipt Date: 20111111
  Transmission Date: 20120403
  Serious: Yes (Hospitalization)
  Sender: FDA-Public Use
  Company Number: US-GLAXOSMITHKLINE-A0951448A

PATIENT
  Age: 71 Year
  Sex: Female

DRUGS (3)
  1. PROMACTA [Suspect]
     Indication: THROMBOCYTOPENIA
     Route: 048
     Dates: end: 20110401
  2. RITUXIMAB [Concomitant]
     Indication: THROMBOCYTOPENIA
  3. DANAZOL [Concomitant]
     Indication: THROMBOCYTOPENIA

REACTIONS (11)
  - FIBROMYALGIA [None]
  - HERPES SIMPLEX [None]
  - ATRIAL FIBRILLATION [None]
  - DEPRESSION [None]
  - DISEASE PROGRESSION [None]
  - HYPOTHYROIDISM [None]
  - THROMBOCYTOPENIA [None]
  - APLASTIC ANAEMIA [None]
  - RENAL FAILURE ACUTE [None]
  - DRUG INEFFECTIVE [None]
  - HAEMORRHAGE INTRACRANIAL [None]
